FAERS Safety Report 25267062 (Version 2)
Quarter: 2025Q2

REPORT INFORMATION
  Report Type: Spontaneous
  Country: US (occurrence: US)
  Receive Date: 20250505
  Receipt Date: 20250619
  Transmission Date: 20250717
  Serious: No
  Sender: BIOVITRUM
  Company Number: US-BIOVITRUM-2025-US-005975

PATIENT
  Age: 82 Year
  Sex: Female

DRUGS (1)
  1. VONJO [Suspect]
     Active Substance: PACRITINIB
     Indication: Myeloproliferative neoplasm
     Route: 048
     Dates: start: 20250319

REACTIONS (7)
  - White blood cell count increased [Unknown]
  - Intentional product misuse [Not Recovered/Not Resolved]
  - Asthenia [Unknown]
  - Fatigue [Unknown]
  - Gingival pain [Unknown]
  - Chest pain [Unknown]
  - Ear pain [Unknown]

NARRATIVE: CASE EVENT DATE: 20250319
